FAERS Safety Report 6639756-6 (Version None)
Quarter: 2010Q1

REPORT INFORMATION
  Report Type: 
  Country: None (occurrence: None)
  Receive Date: 20100318
  Receipt Date: 20100310
  Transmission Date: 20100710
  Serious: Yes (Hospitalization)
  Sender: FDA-Public Use
  Company Number: PHHO2010FR03818

PATIENT
  Sex: Male
  Weight: 79.7 kg

DRUGS (3)
  1. MYCOPHENOLIC ACID [Suspect]
     Indication: RENAL TRANSPLANT
     Dosage: 1140 MG / DAY
     Route: 048
     Dates: start: 20091020
  2. NEORAL [Suspect]
     Indication: RENAL TRANSPLANT
     Dosage: 325 MG / DAY
     Route: 048
     Dates: start: 20091020
  3. NEORAL [Suspect]
     Dosage: 300 MG / DAY
     Route: 048

REACTIONS (2)
  - PYELONEPHRITIS ACUTE [None]
  - RENAL FAILURE ACUTE [None]
